FAERS Safety Report 7681805-0 (Version None)
Quarter: 2011Q3

REPORT INFORMATION
  Report Type: 
  Country: None (occurrence: None)
  Receive Date: 20110812
  Receipt Date: 20110803
  Transmission Date: 20111222
  Serious: Yes (Other)
  Sender: FDA-Public Use
  Company Number: US-ASTRAZENECA-2011SE46695

PATIENT
  Age: 64 Year
  Sex: Female

DRUGS (2)
  1. ANESTHESIA [Suspect]
     Route: 065
  2. TOPROL-XL [Suspect]
     Route: 048

REACTIONS (3)
  - MUSCULOSKELETAL DISORDER [None]
  - MENINGITIS [None]
  - OVERDOSE [None]
